FAERS Safety Report 13530069 (Version 1)
Quarter: 2017Q2

REPORT INFORMATION
  Report Type: Spontaneous
  Country: US (occurrence: US)
  Receive Date: 20170509
  Receipt Date: 20170509
  Transmission Date: 20170830
  Serious: No
  Sender: FDA-Public Use
  Company Number: US-UCBSA-2016016556

PATIENT
  Age: 67 Year
  Sex: Female
  Weight: 63.5 kg

DRUGS (2)
  1. NEUPRO [Suspect]
     Active Substance: ROTIGOTINE
     Dosage: 2 MG, UNK
     Route: 062
     Dates: start: 2016, end: 2016
  2. NEUPRO [Suspect]
     Active Substance: ROTIGOTINE
     Indication: PRODUCT USED FOR UNKNOWN INDICATION
     Dosage: 1 MG, UNK
     Route: 062
     Dates: start: 201603, end: 2016

REACTIONS (3)
  - Somnolence [Recovering/Resolving]
  - Sluggishness [Recovering/Resolving]
  - Feeling abnormal [Recovering/Resolving]

NARRATIVE: CASE EVENT DATE: 201603
